FAERS Safety Report 12346623 (Version 2)
Quarter: 2016Q3

REPORT INFORMATION
  Report Type: Spontaneous
  Country: US (occurrence: US)
  Receive Date: 20160509
  Receipt Date: 20160708
  Transmission Date: 20161109
  Serious: Yes (Hospitalization, Other)
  Sender: FDA-Public Use
  Company Number: US-PFIZER INC-2016233833

PATIENT
  Age: 62 Year
  Sex: Female

DRUGS (3)
  1. PROCARDIA XL [Suspect]
     Active Substance: NIFEDIPINE
     Dosage: 30 MG, 2X/DAY
     Dates: start: 2011
  2. NIFEDIPINE. [Suspect]
     Active Substance: NIFEDIPINE
     Indication: HYPERTENSION
  3. PROCARDIA XL [Suspect]
     Active Substance: NIFEDIPINE
     Indication: HYPERTENSION
     Dosage: UNK UNK, 1X/DAY

REACTIONS (6)
  - Headache [Recovered/Resolved]
  - Intentional underdose [Recovered/Resolved]
  - Oropharyngeal pain [Recovered/Resolved]
  - Malaise [Recovered/Resolved]
  - Dizziness [Recovered/Resolved]
  - Blood pressure inadequately controlled [Recovered/Resolved]
